FAERS Safety Report 6180551-2 (Version None)
Quarter: 2009Q2

REPORT INFORMATION
  Report Type: 
  Country: None (occurrence: None)
  Receive Date: 20090506
  Receipt Date: 20090427
  Transmission Date: 20091009
  Serious: Yes (Disabling, Other)
  Sender: FDA-Public Use
  Company Number: BR-BAYER-200820908LA

PATIENT
  Age: 41 Year
  Sex: Female

DRUGS (6)
  1. BETAFERON [Suspect]
     Indication: MULTIPLE SCLEROSIS
     Dosage: BETAJECT
     Route: 058
     Dates: start: 20080201
  2. BETAFERON [Suspect]
     Dosage: BETAJECT
     Route: 058
     Dates: start: 20080401
  3. BETAFERON [Suspect]
     Dosage: BETAJECT
     Route: 058
  4. GABAPENTIN [Concomitant]
     Indication: NEURITIS
     Dosage: TOTAL DAILY DOSE: 1200 MG  UNIT DOSE: 300 MG
     Route: 048
     Dates: start: 20060101
  5. GABAPENTIN [Concomitant]
     Dosage: TOTAL DAILY DOSE: 1200 MG  UNIT DOSE: 300 MG
     Route: 048
     Dates: start: 20070101
  6. AMANTADINE HCL [Concomitant]
     Indication: OPTIC NEURITIS
     Dosage: TOTAL DAILY DOSE: 200 MG  UNIT DOSE: 100 MG
     Route: 048
     Dates: start: 20081201

REACTIONS (16)
  - BLINDNESS UNILATERAL [None]
  - COLOUR BLINDNESS [None]
  - EYE PAIN [None]
  - HEADACHE [None]
  - HYPOAESTHESIA FACIAL [None]
  - INFLUENZA [None]
  - INJECTION SITE PAIN [None]
  - MULTIPLE SCLEROSIS [None]
  - MULTIPLE SCLEROSIS RELAPSE [None]
  - MUSCLE SPASMS [None]
  - NASAL CONGESTION [None]
  - OPTIC NEURITIS [None]
  - PAIN [None]
  - PRODUCTIVE COUGH [None]
  - VISION BLURRED [None]
  - VISUAL IMPAIRMENT [None]
